FAERS Safety Report 12187814 (Version 4)
Quarter: 2016Q3

REPORT INFORMATION
  Report Type: Spontaneous
  Country: CH (occurrence: PL)
  Receive Date: 20160317
  Receipt Date: 20160808
  Transmission Date: 20161109
  Serious: Yes (Hospitalization)
  Sender: FDA-Public Use
  Company Number: CH-LPDUSPRD-20160214

PATIENT
  Age: 36 Year
  Sex: Female
  Weight: 61 kg

DRUGS (22)
  1. TRANDATE [Concomitant]
     Active Substance: LABETALOL HYDROCHLORIDE
     Dosage: DOSE NOT PROVIDED
     Route: 065
  2. EBRANTIL [Concomitant]
     Active Substance: URAPIDIL
     Dosage: DOSE NOT PROVIDED
     Route: 065
  3. PERFALGAN [Concomitant]
     Active Substance: ACETAMINOPHEN
     Dosage: DOSE NOT PROVIDED
     Route: 065
  4. BETALOC [Concomitant]
     Active Substance: METOPROLOL TARTRATE
     Dosage: DOSE NOT PROVIDED
     Route: 065
  5. DOPEGYT [Concomitant]
     Active Substance: METHYLDOPA
     Dosage: DOSE NOT PROVIDED
     Route: 065
  6. AMLODIPINE [Concomitant]
     Active Substance: AMLODIPINE BESYLATE
     Dosage: DOSE NOT PROVIDED
     Route: 065
  7. AMOTAKS [Concomitant]
     Dosage: 1 GM (1GM, FOR 10 DAYS)
     Route: 065
  8. FRAGMIN [Concomitant]
     Active Substance: DALTEPARIN SODIUM
     Dosage: DOSE NOT PROVIDED
     Route: 065
  9. LUTEIN [Concomitant]
     Active Substance: LUTEIN
     Dosage: DOSE NOT PROVIDED
     Route: 065
  10. ALFADIOL [Concomitant]
     Active Substance: ALFACALCIDOL
     Dosage: 0.25 MCG (1 IN 1 D)
     Route: 065
  11. DEXAVEN [Concomitant]
     Active Substance: DEXAMETHASONE
     Dosage: DOSE NOT PROVIDED
     Route: 065
  12. VENOFER [Suspect]
     Active Substance: IRON SUCROSE
     Dosage: 1 AMPOULE (2 IN 1 WEEK)
     Route: 041
     Dates: start: 20150916, end: 20151211
  13. FURAGIN [Concomitant]
     Dosage: DOSE NOT PROVIDED
     Route: 065
  14. MF [Concomitant]
     Dosage: DOSE NOT PROVIDED
     Route: 065
  15. TARDYFERON [Concomitant]
     Active Substance: FERROUS SULFATE
     Dosage: (2 IN 1 D)
     Route: 065
  16. FERRUM [Concomitant]
     Active Substance: FERROUS FUMARATE
     Dosage: DOSE NOT PROVIDED
     Route: 065
  17. LUTEIN [Concomitant]
     Active Substance: LUTEIN
     Dosage: 100 UNK (50 UNK, 2 IN 1 D)
     Route: 065
  18. BETALOC ZOK [Concomitant]
     Active Substance: METOPROLOL SUCCINATE
     Dosage: 25 MG (25 MG 1 IN 1 D)
     Route: 065
  19. IPOREL [Concomitant]
     Active Substance: CLONIDINE
     Dosage: 0.15 MG (0.075 MG, 2 IN 1 D)
     Route: 065
  20. HEMOFER [Concomitant]
     Dosage: DOSE NOT PROVIDED
     Route: 065
  21. NIFUROKSAZYD [Concomitant]
     Dosage: DOSE NOT PROVIDED
     Route: 065
  22. DOPEGYT [Concomitant]
     Active Substance: METHYLDOPA
     Dosage: 750 MG (250 MG, 3 IN 1 D)
     Route: 065

REACTIONS (3)
  - Premature delivery [Recovered/Resolved]
  - Exposure during pregnancy [Unknown]
  - Pre-eclampsia [Recovered/Resolved]

NARRATIVE: CASE EVENT DATE: 20150916
